FAERS Safety Report 11811867 (Version 1)
Quarter: 2015Q4

REPORT INFORMATION
  Report Type: Spontaneous
  Country: KG (occurrence: KG)
  Receive Date: 20151208
  Receipt Date: 20151208
  Transmission Date: 20160305
  Serious: Yes (Life-Threatening, Other)
  Sender: FDA-Public Use
  Company Number: KG-GLAXOSMITHKLINE-KG2015GSK174315

PATIENT
  Sex: Male
  Weight: 72 kg

DRUGS (1)
  1. SERETIDE [Suspect]
     Active Substance: FLUTICASONE FUROATE\SALMETEROL XINAFOATE
     Indication: ASTHMA
     Dosage: 250/25 MCG
     Route: 055
     Dates: start: 201510

REACTIONS (1)
  - Oesophageal carcinoma [Unknown]
